FAERS Safety Report 19779239 (Version 2)
Quarter: 2021Q4

REPORT INFORMATION
  Report Type: Spontaneous
  Country: AU (occurrence: AU)
  Receive Date: 20210902
  Receipt Date: 20211102
  Transmission Date: 20220303
  Serious: Yes (Other)
  Sender: FDA-Public Use
  Company Number: AU-002147023-NVSC2021AU190536

PATIENT

DRUGS (3)
  1. RUXOLITINIB [Suspect]
     Active Substance: RUXOLITINIB
     Indication: Aicardi-Goutieres syndrome
     Dosage: 5 MG, BID
     Route: 065
  2. BARICITINIB [Suspect]
     Active Substance: BARICITINIB
     Indication: Aicardi-Goutieres syndrome
     Dosage: 2 MG, QDS
     Route: 065
  3. DEXAMETHASONE [Concomitant]
     Active Substance: DEXAMETHASONE
     Indication: Aicardi-Goutieres syndrome
     Dosage: UNK, MONTHLY
     Route: 065

REACTIONS (2)
  - Polyomavirus viraemia [Unknown]
  - Product use in unapproved indication [Unknown]
